FAERS Safety Report 6076996-1 (Version None)
Quarter: 2009Q1

REPORT INFORMATION
  Report Type: 
  Country: None (occurrence: None)
  Receive Date: 20090211
  Receipt Date: 20090211
  Transmission Date: 20090719
  Serious: Yes (Hospitalization)
  Sender: FDA-Public Use
  Company Number: None

PATIENT
  Sex: Male
  Weight: 79 kg

DRUGS (3)
  1. MERCAPTOPURINE [Suspect]
     Dosage: 875 MG
     Dates: end: 20090126
  2. METHOTREXATE [Suspect]
     Dosage: 80 MG
     Dates: end: 20090204
  3. VINCRISTINE SULFATE [Suspect]
     Dosage: 2 MG
     Dates: end: 20090128

REACTIONS (2)
  - DIARRHOEA INFECTIOUS [None]
  - FEBRILE NEUTROPENIA [None]
